FAERS Safety Report 4414135-0 (Version None)
Quarter: 2004Q3

REPORT INFORMATION
  Report Type: 
  Country: None (occurrence: None)
  Receive Date: 20040728
  Receipt Date: 20040712
  Transmission Date: 20050211
  Serious: Yes (Hospitalization)
  Sender: FDA-Public Use
  Company Number: 230027M04SWE

PATIENT
  Age: 45 Year
  Sex: Female

DRUGS (4)
  1. REBIF [Suspect]
     Indication: MULTIPLE SCLEROSIS
     Dosage: 22 MCG, 3 IN 1 WEEKS, SUBCUTANEOUS
     Route: 058
     Dates: start: 19990101
  2. KETOPROFEN [Concomitant]
  3. FOLACIN [Concomitant]
  4. CYANOCOBALAMIN [Concomitant]

REACTIONS (2)
  - PNEUMONIA [None]
  - PNEUMONITIS [None]
